FAERS Safety Report 9099316 (Version 1)
Quarter: 2013Q1

REPORT INFORMATION
  Report Type: Spontaneous
  Country: FR (occurrence: FR)
  Receive Date: 20130214
  Receipt Date: 20130214
  Transmission Date: 20140127
  Serious: Yes (Other)
  Sender: FDA-Public Use
  Company Number: FR-PFIZER INC-2013056117

PATIENT
  Sex: Male

DRUGS (1)
  1. DALACINE [Suspect]
     Dosage: UNK

REACTIONS (1)
  - Toxic skin eruption [Recovered/Resolved]
